FAERS Safety Report 5479181-7 (Version None)
Quarter: 2007Q4

REPORT INFORMATION
  Report Type: 
  Country: None (occurrence: None)
  Receive Date: 20071008
  Receipt Date: 20070928
  Transmission Date: 20080405
  Serious: Yes (Hospitalization)
  Sender: FDA-Public Use
  Company Number: JP-ELI_LILLY_AND_COMPANY-JP200709006982

PATIENT
  Age: 40 Year
  Sex: Male

DRUGS (7)
  1. ZYPREXA [Suspect]
     Indication: SCHIZOPHRENIA
     Dosage: 5 MG, DAILY (1/D)
     Route: 048
     Dates: end: 20070801
  2. RISPERIDONE [Concomitant]
     Indication: SCHIZOPHRENIA
     Dosage: 3 MG, DAILY (1/D)
     Route: 048
  3. BIPERIDEN HYDROCHLORIDE TAB [Concomitant]
     Dosage: 3 MG, DAILY (1/D)
     Route: 048
  4. DEPAS [Concomitant]
     Dosage: 1 MG, DAILY (1/D)
     Route: 048
  5. DEPAS [Concomitant]
     Dosage: 1.5 MG, DAILY (1/D)
     Route: 048
     Dates: start: 20070925
  6. BETA BLOCKING AGENTS [Concomitant]
     Dosage: 30 MG, DAILY (1/D)
  7. PROTOPORPHYRIN [Concomitant]
     Dosage: 60 MG, DAILY (1/D)
     Dates: start: 20050601

REACTIONS (7)
  - ALANINE AMINOTRANSFERASE INCREASED [None]
  - ASPARTATE AMINOTRANSFERASE INCREASED [None]
  - BLOOD ALKALINE PHOSPHATASE INCREASED [None]
  - BLOOD CREATINE PHOSPHOKINASE INCREASED [None]
  - BLOOD LACTATE DEHYDROGENASE INCREASED [None]
  - GAMMA-GLUTAMYLTRANSFERASE INCREASED [None]
  - GUILLAIN-BARRE SYNDROME [None]
